FAERS Safety Report 5045306-0 (Version None)
Quarter: 2006Q3

REPORT INFORMATION
  Report Type: 
  Country: None (occurrence: None)
  Receive Date: 20060707
  Receipt Date: 20060628
  Transmission Date: 20061208
  Serious: Yes (Death, Other)
  Sender: FDA-Public Use
  Company Number: PHBS2006JP09731

PATIENT
  Sex: Male

DRUGS (8)
  1. TEGRETOL [Suspect]
     Indication: METASTATIC PAIN
     Route: 065
  2. VOLTAREN [Suspect]
     Indication: METASTATIC PAIN
     Route: 048
  3. OXYCONTIN [Concomitant]
     Indication: METASTATIC PAIN
  4. DUROTEP [Concomitant]
     Indication: METASTATIC PAIN
  5. MORPHINE [Concomitant]
     Indication: METASTATIC PAIN
     Route: 041
  6. FENTANEST [Concomitant]
     Indication: METASTATIC PAIN
     Route: 041
  7. DAV [Concomitant]
  8. INTERFERON BETA [Concomitant]

REACTIONS (4)
  - BONE PAIN [None]
  - MULTI-ORGAN FAILURE [None]
  - SOMNOLENCE [None]
  - VOMITING [None]
